FAERS Safety Report 6915339-5 (Version None)
Quarter: 2010Q3

REPORT INFORMATION
  Report Type: 
  Country: None (occurrence: None)
  Receive Date: 20100809
  Receipt Date: 20091123
  Transmission Date: 20110219
  Serious: Yes (Other)
  Sender: FDA-Public Use
  Company Number: US-ABBOTT-09P-163-0610225-00

PATIENT
  Sex: Male
  Weight: 55 kg

DRUGS (4)
  1. DEPAKOTE ER [Suspect]
     Indication: DEVELOPMENTAL DELAY
     Dosage: 1500 IN THE AM 1500 IN THE PM
     Dates: start: 20090701, end: 20091122
  2. DEPAKOTE ER [Suspect]
     Indication: EPILEPSY
     Dosage: 1250 IN THE AM 1500 IN THE PM
     Dates: start: 20091122
  3. TEGRETOL [Concomitant]
     Indication: PRODUCT USED FOR UNKNOWN INDICATION
  4. TOPIRAMATE [Concomitant]
     Indication: PRODUCT USED FOR UNKNOWN INDICATION

REACTIONS (3)
  - DECREASED APPETITE [None]
  - GAIT DISTURBANCE [None]
  - SOMNOLENCE [None]
